FAERS Safety Report 11933217 (Version 1)
Quarter: 2016Q1

REPORT INFORMATION
  Report Type: Spontaneous
  Country: IT (occurrence: IT)
  Receive Date: 20160121
  Receipt Date: 20160121
  Transmission Date: 20160526
  Serious: Yes (Death)
  Sender: FDA-Public Use
  Company Number: IT-CIPLA LTD.-2016IT00284

PATIENT

DRUGS (2)
  1. GEMCITABINE [Suspect]
     Active Substance: GEMCITABINE\GEMCITABINE HYDROCHLORIDE
     Indication: SQUAMOUS CELL CARCINOMA OF HEAD AND NECK
     Dosage: 800 MG/M2, ON DAYS 1 AND 12 OF EVERY CISPLATIN COURSE
     Route: 065
  2. CISPLATIN. [Suspect]
     Active Substance: CISPLATIN
     Indication: SQUAMOUS CELL CARCINOMA OF HEAD AND NECK
     Dosage: 20 MG/M2, ON DAYS 2 TO 5 (TOTAL DOSE 80 MG/M2) ON WEEKS 1, 4, AND 7 (3 COURSES)
     Route: 065

REACTIONS (2)
  - Febrile neutropenia [Fatal]
  - Enterocolitis [Fatal]
